FAERS Safety Report 7546265-9 (Version None)
Quarter: 2011Q2

REPORT INFORMATION
  Report Type: 
  Country: None (occurrence: None)
  Receive Date: 20110614
  Receipt Date: 20060120
  Transmission Date: 20111010
  Serious: Yes (Disabling, Other)
  Sender: FDA-Public Use
  Company Number: PHNR2006AU00451

PATIENT
  Sex: Female

DRUGS (5)
  1. LASIX [Concomitant]
  2. CENOCORT A-40 [Concomitant]
  3. CLOZAPINE [Suspect]
     Dosage: 0-600 MG/DAY
     Dates: start: 19940518, end: 20051223
  4. ACETAMINOPHEN [Concomitant]
     Dosage: UNK, BID
  5. PANTOPRAZOLE [Concomitant]

REACTIONS (11)
  - ASTHENIA [None]
  - GENERAL PHYSICAL CONDITION ABNORMAL [None]
  - VOMITING [None]
  - GENERAL PHYSICAL HEALTH DETERIORATION [None]
  - DYSPEPSIA [None]
  - DIARRHOEA [None]
  - LIVER FUNCTION TEST ABNORMAL [None]
  - CARDIAC FAILURE CONGESTIVE [None]
  - PALLOR [None]
  - MALAISE [None]
  - CRYING [None]
